FAERS Safety Report 21902893 (Version 1)
Quarter: 2023Q1

REPORT INFORMATION
  Report Type: Spontaneous
  Country: US (occurrence: None)
  Receive Date: 20230123
  Receipt Date: 20230123
  Transmission Date: 20230417
  Serious: No
  Sender: FDA-Public Use
  Company Number: None

PATIENT
  Sex: Female

DRUGS (1)
  1. STELARA [Suspect]
     Active Substance: USTEKINUMAB
     Indication: Colitis
     Dosage: OTHER FREQUENCY : Q 8 WKS;?
     Route: 058
     Dates: start: 20210621, end: 20230120

REACTIONS (3)
  - Device leakage [None]
  - Exposure via skin contact [None]
  - Product dose omission in error [None]
